FAERS Safety Report 21141684 (Version 1)
Quarter: 2022Q3

REPORT INFORMATION
  Report Type: Spontaneous
  Country: US (occurrence: US)
  Receive Date: 20220728
  Receipt Date: 20220728
  Transmission Date: 20221027
  Serious: Yes (Hospitalization)
  Sender: FDA-Public Use
  Company Number: US-IGSA-BIG0016784

PATIENT
  Age: 50 Year
  Sex: Male

DRUGS (3)
  1. HUMAN IMMUNOGLOBULIN G [Suspect]
     Active Substance: HUMAN IMMUNOGLOBULIN G
     Indication: Immune thrombocytopenia
     Dosage: UNK UNKNOWN, UNKNOWN
     Route: 042
  2. BRENTUXIMAB [Concomitant]
     Active Substance: BRENTUXIMAB
     Indication: T-cell lymphoma
  3. RITUXIMAB [Concomitant]
     Active Substance: RITUXIMAB
     Indication: Immune thrombocytopenia

REACTIONS (2)
  - Thrombotic microangiopathy [Not Recovered/Not Resolved]
  - Renal failure [Not Recovered/Not Resolved]
